FAERS Safety Report 4389727-8 (Version None)
Quarter: 2004Q2

REPORT INFORMATION
  Report Type: 
  Country: None (occurrence: None)
  Receive Date: 20040629
  Receipt Date: 20030723
  Transmission Date: 20050107
  Serious: Yes (Hospitalization)
  Sender: FDA-Public Use
  Company Number: US-JNJFOC-20030706106

PATIENT

DRUGS (2)
  1. DURAGESIC [Suspect]
     Indication: PAIN
     Dosage: 25 UG/KG, TRANSDERMAL
     Route: 062
  2. DICLOXACILLIN [Concomitant]

REACTIONS (1)
  - THERAPEUTIC RESPONSE INCREASED [None]
